FAERS Safety Report 19067817 (Version 1)
Quarter: 2021Q1

REPORT INFORMATION
  Report Type: Spontaneous
  Country: US (occurrence: US)
  Receive Date: 20210326
  Receipt Date: 20210326
  Transmission Date: 20210420
  Serious: Yes (Other)
  Sender: FDA-Public Use
  Company Number: None

PATIENT
  Age: 76 Year
  Sex: Male
  Weight: 74.25 kg

DRUGS (20)
  1. LORAZEPAM. [Concomitant]
     Active Substance: LORAZEPAM
  2. ENALAPRIL [Concomitant]
     Active Substance: ENALAPRIL
  3. DORZOLAMIDE [Concomitant]
     Active Substance: DORZOLAMIDE
  4. PROCHLORAZEPINE [Concomitant]
  5. KETOCONAZOLE. [Concomitant]
     Active Substance: KETOCONAZOLE
  6. CAPECITABINE. [Suspect]
     Active Substance: CAPECITABINE
     Indication: BILE DUCT CANCER
     Route: 048
     Dates: start: 20210217
  7. ONDANSETRON [Concomitant]
     Active Substance: ONDANSETRON
  8. AMLODIPINE [Concomitant]
     Active Substance: AMLODIPINE BESYLATE
  9. DUTASTERIDE. [Concomitant]
     Active Substance: DUTASTERIDE
  10. PRADAXA [Concomitant]
     Active Substance: DABIGATRAN ETEXILATE MESYLATE
  11. DOXEPIN [Concomitant]
     Active Substance: DOXEPIN
  12. CENTRUM [Concomitant]
     Active Substance: VITAMINS
  13. FAMOTIDINE. [Concomitant]
     Active Substance: FAMOTIDINE
  14. GEMCITABINE. [Concomitant]
     Active Substance: GEMCITABINE
  15. ATORVASTATIN [Concomitant]
     Active Substance: ATORVASTATIN
  16. SIMBRINZA [Concomitant]
     Active Substance: BRIMONIDINE TARTRATE\BRINZOLAMIDE
  17. LATANOPROST. [Concomitant]
     Active Substance: LATANOPROST
  18. TYLENOL EXTRA STRENGTH [Concomitant]
     Active Substance: ACETAMINOPHEN
  19. METOPROLOL. [Concomitant]
     Active Substance: METOPROLOL
  20. TAMSULOSIN [Concomitant]
     Active Substance: TAMSULOSIN

REACTIONS (1)
  - Rash [None]

NARRATIVE: CASE EVENT DATE: 20210326
